FAERS Safety Report 5251667-X (Version None)
Quarter: 2007Q1

REPORT INFORMATION
  Report Type: 
  Country: None (occurrence: None)
  Receive Date: 20070228
  Receipt Date: 20061005
  Transmission Date: 20070707
  Serious: Yes (Other)
  Sender: FDA-Public Use
  Company Number: US-GLAXOSMITHKLINE-A0622658A

PATIENT
  Age: 45 Year
  Sex: Male

DRUGS (16)
  1. LAMICTAL [Suspect]
     Indication: BIPOLAR DISORDER
     Dosage: 700MG PER DAY
     Route: 048
     Dates: start: 19970101
  2. FENTANYL TRANSDERM [Concomitant]
  3. OXYCODONE HCL [Concomitant]
  4. MULTI-VITAMIN [Concomitant]
  5. LORAZEPAM [Concomitant]
  6. PROCHLORPERAZINE [Concomitant]
  7. DOXAZOSIN MESYLATE [Concomitant]
  8. CREON [Concomitant]
  9. IPRATROPIUM BROMIDE [Concomitant]
  10. CLARITIN [Concomitant]
  11. XOPENEX [Concomitant]
  12. TERBINAFINE [Concomitant]
  13. HYDROCORTISONE [Concomitant]
  14. ZANTAC [Concomitant]
  15. PANTOPRAZOLE SODIUM [Concomitant]
  16. LACTULOSE [Concomitant]

REACTIONS (1)
  - PANCREATITIS ACUTE [None]
